FAERS Safety Report 9703875 (Version 2)
Quarter: 2014Q1

REPORT INFORMATION
  Report Type: Spontaneous
  Country: US (occurrence: US)
  Receive Date: 20131122
  Receipt Date: 20140129
  Transmission Date: 20141002
  Serious: No
  Sender: FDA-Public Use
  Company Number: US-TEVA-446388USA

PATIENT
  Age: 18 Year
  Sex: Female
  Weight: 51.76 kg

DRUGS (3)
  1. PLAN B ONE-STEP [Suspect]
     Indication: POST COITAL CONTRACEPTION
     Dosage: 1.5 MILLIGRAM DAILY;
     Route: 048
     Dates: start: 20131111, end: 20131111
  2. ADDERALL [Concomitant]
     Indication: ATTENTION DEFICIT/HYPERACTIVITY DISORDER
     Dosage: 10 MILLIGRAM DAILY;
     Route: 048
  3. LAMOTRIGINE [Concomitant]
     Indication: DEPRESSION
     Dosage: 150 MILLIGRAM DAILY;
     Route: 048

REACTIONS (2)
  - Pelvic pain [Recovered/Resolved]
  - Menstruation irregular [Recovered/Resolved]
